FAERS Safety Report 23945113 (Version 1)
Quarter: 2024Q2

REPORT INFORMATION
  Report Type: Other
  Country: US (occurrence: None)
  Receive Date: 20240606
  Receipt Date: 20240606
  Transmission Date: 20240716
  Serious: Yes (Other)
  Sender: FDA-Public Use
  Company Number: US-ROCHE-3574687

PATIENT

DRUGS (4)
  1. TRASTUZUMAB [Suspect]
     Active Substance: TRASTUZUMAB
     Indication: Breast cancer
     Route: 042
  2. TRASTUZUMAB [Suspect]
     Active Substance: TRASTUZUMAB
     Indication: Breast cancer metastatic
  3. AGATOLIMOD SODIUM [Suspect]
     Active Substance: AGATOLIMOD SODIUM
     Indication: Breast cancer
     Route: 058
  4. AGATOLIMOD SODIUM [Suspect]
     Active Substance: AGATOLIMOD SODIUM
     Indication: Breast cancer metastatic

REACTIONS (12)
  - Fatigue [Unknown]
  - Injection site reaction [Unknown]
  - Lymphopenia [Unknown]
  - Pyrexia [Unknown]
  - Pain [Unknown]
  - Leukopenia [Unknown]
  - Neutropenia [Unknown]
  - Alanine aminotransferase increased [Unknown]
  - Hyperglycaemia [Unknown]
  - Hypoalbuminaemia [Unknown]
  - Encephalopathy [Unknown]
  - Peripheral sensory neuropathy [Unknown]
